FAERS Safety Report 21010367 (Version 1)
Quarter: 2022Q2

REPORT INFORMATION
  Report Type: Spontaneous
  Country: US (occurrence: None)
  Receive Date: 20220625
  Receipt Date: 20220625
  Transmission Date: 20220721
  Serious: Yes (Hospitalization)
  Sender: FDA-Public Use
  Company Number: None

PATIENT
  Age: 5 Year
  Sex: Female
  Weight: 16 kg

DRUGS (6)
  1. CYCLOPHOSPHAMIDE [Suspect]
     Active Substance: CYCLOPHOSPHAMIDE
     Dates: start: 20220304, end: 20220511
  2. CYTARABINE [Suspect]
     Active Substance: CYTARABINE
     Dates: start: 20220304, end: 20220521
  3. MERCAPTOPURINE [Suspect]
     Active Substance: MERCAPTOPURINE
     Dates: start: 20220304, end: 20220601
  4. METHOTREXATE [Suspect]
     Active Substance: METHOTREXATE
     Indication: Product used for unknown indication
     Dates: start: 20220304, end: 20220502
  5. ONCASPAR [Suspect]
     Active Substance: PEGASPARGASE
     Dosage: OTHER STRENGTH : 3600 UNIT;?
     Dates: start: 20220304, end: 20220525
  6. MARQIBO [Suspect]
     Active Substance: VINCRISTINE SULFATE
     Dates: start: 20220304, end: 20220601

REACTIONS (4)
  - Sepsis [None]
  - Escherichia bacteraemia [None]
  - Pancreatitis [None]
  - Hypervolaemia [None]

NARRATIVE: CASE EVENT DATE: 20220603
